FAERS Safety Report 6642026-3 (Version None)
Quarter: 2010Q1

REPORT INFORMATION
  Report Type: 
  Country: None (occurrence: None)
  Receive Date: 20100319
  Receipt Date: 20100310
  Transmission Date: 20100710
  Serious: Yes (Hospitalization)
  Sender: FDA-Public Use
  Company Number: CA-JNJFOC-20090903694

PATIENT
  Sex: Female
  Weight: 87 kg

DRUGS (6)
  1. REMICADE [Suspect]
     Indication: RHEUMATOID ARTHRITIS
     Dosage: LOADING DOSE
     Route: 042
     Dates: start: 20090708, end: 20090724
  2. REMICADE [Suspect]
     Dosage: LOADING DOSE
     Route: 042
     Dates: start: 20090708, end: 20090724
  3. FOSAMAX [Concomitant]
  4. ADVAIR DISKUS 100/50 [Concomitant]
  5. METHOTREXATE [Concomitant]
  6. MORPHINE [Concomitant]

REACTIONS (3)
  - CHRONIC OBSTRUCTIVE PULMONARY DISEASE [None]
  - PNEUMONIA [None]
  - RASH [None]
